FAERS Safety Report 9279451 (Version 1)
Quarter: 2013Q2

REPORT INFORMATION
  Report Type: Spontaneous
  Country: NO (occurrence: NO)
  Receive Date: 20130508
  Receipt Date: 20130508
  Transmission Date: 20140414
  Serious: Yes (Other)
  Sender: FDA-Public Use
  Company Number: NO-PFIZER INC-2013140364

PATIENT
  Sex: Female

DRUGS (1)
  1. CHAMPIX [Suspect]
     Indication: SMOKING CESSATION THERAPY
     Dosage: 1 MG, UNK
     Dates: start: 201304

REACTIONS (5)
  - Haematochezia [Unknown]
  - Constipation [Unknown]
  - Abdominal pain upper [Unknown]
  - Nausea [Unknown]
  - Weight increased [Unknown]
